FAERS Safety Report 8988571 (Version 1)
Quarter: 2012Q4

REPORT INFORMATION
  Report Type: Report from Study
  Country: BE (occurrence: BE)
  Receive Date: 20121228
  Receipt Date: 20121228
  Transmission Date: 20130627
  Serious: Yes (Hospitalization)
  Sender: FDA-Public Use
  Company Number: BE-TEVA-377468ISR

PATIENT
  Age: 58 Year
  Sex: Male
  Weight: 66 kg

DRUGS (18)
  1. DOXORUBICIN [Suspect]
     Indication: DIFFUSE LARGE B-CELL LYMPHOMA
     Dosage: 89.5 Milligram Daily;
     Route: 042
     Dates: start: 20101230
  2. DOXORUBICIN [Suspect]
     Dosage: 87.5 Milligram Daily;
     Route: 042
     Dates: start: 20110203
  3. DOXORUBICIN [Suspect]
     Dosage: 89 Milligram Daily;
     Route: 042
     Dates: start: 20110303
  4. VINCRISTINE [Suspect]
     Indication: DIFFUSE LARGE B-CELL LYMPHOMA
     Dosage: 2 Milligram Daily;
     Route: 042
     Dates: start: 20101230
  5. VINCRISTINE [Suspect]
     Dosage: 2 Milligram Daily;
     Route: 042
     Dates: start: 20110203
  6. VINCRISTINE [Suspect]
     Dosage: 1 Milligram Daily;
     Route: 042
     Dates: start: 20110303
  7. G-CSF (TEVAGRASTIM/RATIOGRASTIM) [Suspect]
     Indication: DIFFUSE LARGE B-CELL LYMPHOMA
     Dosage: 6 Milligram Daily;
     Route: 058
     Dates: start: 20101231
  8. G-CSF (TEVAGRASTIM/RATIOGRASTIM) [Suspect]
     Dosage: 6 Milligram Daily;
     Route: 058
     Dates: start: 20110207
  9. G-CSF (TEVAGRASTIM/RATIOGRASTIM) [Suspect]
     Dosage: 6 Milligram Daily;
     Route: 058
     Dates: start: 20110303
  10. RITUXIMAB [Suspect]
     Indication: DIFFUSE LARGE B-CELL LYMPHOMA
     Dosage: 672 Milligram Daily;
     Route: 042
     Dates: start: 20101230
  11. RITUXIMAB [Suspect]
     Dosage: 700 Milligram Daily;
     Route: 042
     Dates: start: 20110203
  12. RITUXIMAB [Suspect]
     Dosage: 700 Milligram Daily;
     Route: 042
     Dates: start: 20110303
  13. PREDNISONE [Suspect]
     Indication: DIFFUSE LARGE B-CELL LYMPHOMA
     Dosage: 500 Milligram Daily;
     Route: 048
     Dates: start: 20101230
  14. PREDNISONE [Suspect]
     Dosage: 100 Milligram Daily;
     Route: 048
     Dates: start: 20110203
  15. PREDNISONE [Suspect]
     Dosage: 100 Milligram Daily;
     Route: 048
     Dates: start: 20110303
  16. CYCLOPHOSPHAMIDE [Suspect]
     Indication: DIFFUSE LARGE B-CELL LYMPHOMA
     Dosage: 1343 Milligram Daily;
     Route: 042
     Dates: start: 20101230
  17. CYCLOPHOSPHAMIDE [Suspect]
     Dosage: 1313 Milligram Daily;
     Route: 042
     Dates: start: 20110203
  18. CYCLOPHOSPHAMIDE [Suspect]
     Dosage: 1335 Milligram Daily;
     Route: 042
     Dates: start: 20110303

REACTIONS (4)
  - Pulmonary embolism [Recovered/Resolved]
  - Pneumonia [Recovered/Resolved]
  - Febrile neutropenia [Recovered/Resolved]
  - Empyema [Recovered/Resolved]
